FAERS Safety Report 11246388 (Version 1)
Quarter: 2015Q2

REPORT INFORMATION
  Report Type: Spontaneous
  Country: US (occurrence: None)
  Receive Date: 20150616
  Receipt Date: 20150616
  Transmission Date: 20150821
  Serious: Yes (Hospitalization)
  Sender: FDA-Public Use
  Company Number: USW201412-000308

PATIENT
  Age: 69 Year
  Sex: Male
  Weight: 58.96 kg

DRUGS (1)
  1. APOKYN [Suspect]
     Active Substance: APOMORPHINE HYDROCHLORIDE
     Indication: PARKINSON^S DISEASE
     Dosage: 0.2 ML, 4-5 TIMES/DAY, ABDOMEN/UPPER ARM, SUBCUTANEOUS
     Route: 058
     Dates: start: 20141202

REACTIONS (1)
  - Hypotension [None]

NARRATIVE: CASE EVENT DATE: 20141220
